FAERS Safety Report 5148147-9 (Version None)
Quarter: 2006Q4

REPORT INFORMATION
  Report Type: 
  Country: None (occurrence: None)
  Receive Date: 20061110
  Receipt Date: 20061031
  Transmission Date: 20070319
  Serious: Yes (Hospitalization)
  Sender: FDA-Public Use
  Company Number: 2006AP05241

PATIENT
  Age: 9 Year
  Sex: Male

DRUGS (4)
  1. PULMICORT RESPULES [Suspect]
     Indication: ASTHMA
     Route: 055
     Dates: start: 20061010, end: 20061014
  2. MELLABON [Concomitant]
     Route: 048
  3. TAVEGYL [Concomitant]
     Route: 048
  4. INTAL [Concomitant]
     Route: 048

REACTIONS (1)
  - ASTHMA [None]
